FAERS Safety Report 7458993-4 (Version None)
Quarter: 2011Q2

REPORT INFORMATION
  Report Type: 
  Country: None (occurrence: None)
  Receive Date: 20110505
  Receipt Date: 20110420
  Transmission Date: 20111010
  Serious: Yes (Hospitalization)
  Sender: FDA-Public Use
  Company Number: US-MYLANLABS-2011S1008386

PATIENT
  Age: 63 Year
  Sex: Male

DRUGS (2)
  1. LEVOTHYROXINE SODIUM [Suspect]
     Indication: HYPOTHYROIDISM
     Route: 048
     Dates: start: 20090401, end: 20090401
  2. AMLODIPINE BESYLATE [Concomitant]
     Indication: BLOOD PRESSURE INCREASED

REACTIONS (3)
  - TACHYCARDIA [None]
  - BLOOD PRESSURE INCREASED [None]
  - DIZZINESS [None]
